FAERS Safety Report 23526681 (Version 6)
Quarter: 2024Q2

REPORT INFORMATION
  Report Type: Spontaneous
  Country: US (occurrence: US)
  Receive Date: 20240215
  Receipt Date: 20240501
  Transmission Date: 20240716
  Serious: No
  Sender: FDA-Public Use
  Company Number: US-PFIZER INC-202400034071

PATIENT
  Age: 16 Year
  Sex: Male
  Weight: 65.77 kg

DRUGS (2)
  1. GENOTROPIN [Suspect]
     Active Substance: SOMATROPIN
     Indication: Growth hormone deficiency
     Dosage: 3.2
     Dates: start: 202301
  2. GENOTROPIN [Suspect]
     Active Substance: SOMATROPIN
     Dosage: 3.4
     Dates: start: 202301

REACTIONS (5)
  - Drug dose omission by device [Unknown]
  - Poor quality device used [Unknown]
  - Device malfunction [Unknown]
  - Needle issue [Unknown]
  - Device breakage [Unknown]

NARRATIVE: CASE EVENT DATE: 20240101
